FAERS Safety Report 7590538-0 (Version None)
Quarter: 2011Q3

REPORT INFORMATION
  Report Type: 
  Country: None (occurrence: None)
  Receive Date: 20110705
  Receipt Date: 20110623
  Transmission Date: 20111222
  Serious: Yes (Life-Threatening)
  Sender: FDA-Public Use
  Company Number: US-JNJFOC-20110611960

PATIENT
  Sex: Female
  Weight: 32 kg

DRUGS (2)
  1. INFLIXIMAB, RECOMBINANT [Suspect]
     Indication: INFLAMMATORY BOWEL DISEASE
     Route: 042
     Dates: start: 20100420, end: 20110412
  2. ACETAMINOPHEN [Concomitant]
     Indication: PREMEDICATION
     Dates: start: 20110412

REACTIONS (1)
  - ANAPHYLACTIC REACTION [None]
